FAERS Safety Report 19783925 (Version 1)
Quarter: 2021Q3

REPORT INFORMATION
  Report Type: Spontaneous
  Country: US (occurrence: US)
  Receive Date: 20210903
  Receipt Date: 20210903
  Transmission Date: 20211014
  Serious: No
  Sender: FDA-Public Use
  Company Number: US-BECTON DICKINSON-US-BD-20-006768

PATIENT

DRUGS (2)
  1. MASTISOL [DEVICE] [Suspect]
     Active Substance: DEVICE
     Dosage: UNK
     Dates: start: 20200908
  2. CHLORAPREP [Suspect]
     Active Substance: CHLORHEXIDINE GLUCONATE\ISOPROPYL ALCOHOL
     Dosage: UNK
     Route: 061
     Dates: start: 20200908, end: 20200908

REACTIONS (3)
  - Skin irritation [Unknown]
  - Rash [Unknown]
  - Hypersensitivity [Unknown]

NARRATIVE: CASE EVENT DATE: 20200918
